FAERS Safety Report 5186297-1 (Version None)
Quarter: 2006Q4

REPORT INFORMATION
  Report Type: 
  Country: None (occurrence: None)
  Receive Date: 20061213
  Receipt Date: 20061130
  Transmission Date: 20070319
  Serious: Yes (Other)
  Sender: FDA-Public Use
  Company Number: 02100-JPN-06-0563

PATIENT
  Sex: Male

DRUGS (6)
  1. CILOSTAZOL [Suspect]
     Dosage: ORAL
     Route: 048
  2. ATORVASTATIN CALCIUM [Suspect]
     Dosage: 10 MG, ORAL
     Route: 048
     Dates: start: 20061106, end: 20061110
  3. TICLOPIDINE HYDROCHLORIDE [Suspect]
     Dosage: ORAL
     Route: 048
  4. ASPIRIN [Suspect]
     Dosage: ORAL
     Route: 048
  5. FUROSEMIDE [Concomitant]
  6. SPIRONOLACTONE [Concomitant]

REACTIONS (1)
  - RHABDOMYOLYSIS [None]
